FAERS Safety Report 6328461-1 (Version None)
Quarter: 2009Q3

REPORT INFORMATION
  Report Type: 
  Country: None (occurrence: None)
  Receive Date: 20090825
  Receipt Date: 20090618
  Transmission Date: 20100115
  Serious: No
  Sender: FDA-Public Use
  Company Number: US-ABBOTT-09P-163-0581037-00

PATIENT
  Sex: Female

DRUGS (4)
  1. SYNTHROID [Suspect]
     Indication: HYPOTHYROIDISM
     Route: 048
     Dates: start: 20060901, end: 20080201
  2. SYNTHROID [Suspect]
     Route: 048
     Dates: start: 20081001, end: 20090601
  3. SYNTHROID [Suspect]
     Route: 048
     Dates: start: 20090612
  4. PROZAC [Suspect]
     Indication: DEPRESSION
     Route: 048
     Dates: start: 20070101

REACTIONS (1)
  - THYROID FUNCTION TEST ABNORMAL [None]
